FAERS Safety Report 23393979 (Version 1)
Quarter: 2024Q1

REPORT INFORMATION
  Report Type: Report from Study
  Country: US (occurrence: US)
  Receive Date: 20240111
  Receipt Date: 20240111
  Transmission Date: 20240410
  Serious: Yes (Hospitalization, Other)
  Sender: FDA-Public Use
  Company Number: US-HLS-202302411

PATIENT
  Age: 29 Year
  Sex: Male

DRUGS (1)
  1. CLOZAPINE [Suspect]
     Active Substance: CLOZAPINE
     Indication: Schizophrenia
     Dosage: PRIOR TO 11-DEC-2023: 100 TABLET?ON 11-DEC-2023: INCREASED TO 150 TABLET
     Route: 065

REACTIONS (1)
  - Psychotic disorder [Unknown]
